FAERS Safety Report 13618593 (Version 1)
Quarter: 2017Q2

REPORT INFORMATION
  Report Type: Spontaneous
  Country: US (occurrence: US)
  Receive Date: 20170606
  Receipt Date: 20170606
  Transmission Date: 20170830
  Serious: Yes (Other)
  Sender: FDA-Public Use
  Company Number: US-ARBOR PHARMACEUTICALS, LLC-US-2017ARB000467

PATIENT

DRUGS (5)
  1. LORAZEPAM ACTAVIS [Suspect]
     Active Substance: LORAZEPAM
     Indication: INSOMNIA
     Dosage: 2 MG, BID
     Route: 048
     Dates: start: 20170425
  2. FIORICET [Suspect]
     Active Substance: ACETAMINOPHEN\BUTALBITAL\CAFFEINE
     Indication: MIGRAINE
     Dosage: UNK
     Route: 048
     Dates: start: 20140319, end: 20161216
  3. FLUOXETINE [Suspect]
     Active Substance: FLUOXETINE HYDROCHLORIDE
     Indication: DEPRESSION
     Dosage: 40 MG, QD
     Route: 048
     Dates: start: 20170425
  4. EDARBYCLOR [Suspect]
     Active Substance: AZILSARTAN KAMEDOXOMIL\CHLORTHALIDONE
     Indication: PRODUCT USED FOR UNKNOWN INDICATION
     Dosage: UNK
  5. YAZ [Suspect]
     Active Substance: DROSPIRENONE\ETHINYL ESTRADIOL
     Indication: CONTRACEPTION
     Dosage: 3-0.02 MG, QD
     Route: 048
     Dates: start: 20140319

REACTIONS (3)
  - Syncope [Unknown]
  - Loss of consciousness [Unknown]
  - Hypertension [Unknown]
